FAERS Safety Report 8737693 (Version 3)
Quarter: 2013Q4

REPORT INFORMATION
  Report Type: Spontaneous
  Country: US (occurrence: US)
  Receive Date: 20120822
  Receipt Date: 20131031
  Transmission Date: 20140711
  Serious: No
  Sender: FDA-Public Use
  Company Number: US-009507513-2012SP031269

PATIENT
  Age: 16 Year
  Sex: Female
  Weight: 68.93 kg

DRUGS (1)
  1. IMPLANON [Suspect]
     Indication: CONTRACEPTION
     Dosage: 1 DF, UNK
     Route: 059
     Dates: start: 20120118

REACTIONS (5)
  - Menstruation irregular [Unknown]
  - Medical device complication [Unknown]
  - Medical device complication [Unknown]
  - Medical device complication [Unknown]
  - Device dislocation [Unknown]
